FAERS Safety Report 16024178 (Version 1)
Quarter: 2019Q1

REPORT INFORMATION
  Report Type: Report from Study
  Country: RO (occurrence: RO)
  Receive Date: 20190301
  Receipt Date: 20190301
  Transmission Date: 20190418
  Serious: Yes (Other)
  Sender: FDA-Public Use
  Company Number: RO-GILEAD-2019-0388654

PATIENT
  Age: 54 Year
  Sex: Female

DRUGS (4)
  1. LEDIPASVIR/SOFOSBUVIR [Suspect]
     Active Substance: LEDIPASVIR\SOFOSBUVIR
     Indication: CHRONIC HEPATITIS C
     Dosage: 1 DF, QD
     Route: 048
     Dates: start: 20190126
  2. ASPENTER [Concomitant]
     Active Substance: ASPIRIN
  3. TERTENSIF [Concomitant]
     Active Substance: INDAPAMIDE
  4. LERIDIP [Concomitant]

REACTIONS (9)
  - Hypertensive crisis [Recovered/Resolved]
  - Asthenia [Not Recovered/Not Resolved]
  - Heart rate increased [Unknown]
  - Hepatic pain [Not Recovered/Not Resolved]
  - Nausea [Not Recovered/Not Resolved]
  - Fatigue [Not Recovered/Not Resolved]
  - Nervousness [Not Recovered/Not Resolved]
  - Asthenia [Not Recovered/Not Resolved]
  - Fatigue [Not Recovered/Not Resolved]

NARRATIVE: CASE EVENT DATE: 20190126
